FAERS Safety Report 20806799 (Version 1)
Quarter: 2022Q2

REPORT INFORMATION
  Report Type: Spontaneous
  Country: CO (occurrence: CO)
  Receive Date: 20220510
  Receipt Date: 20220510
  Transmission Date: 20220721
  Serious: No
  Sender: FDA-Public Use
  Company Number: CO-LUPIN PHARMACEUTICALS INC.-2022-06706

PATIENT
  Age: 17 Year

DRUGS (2)
  1. MORPHINE [Suspect]
     Active Substance: MORPHINE
     Indication: Abdominal pain
     Dosage: UNK
     Route: 065
  2. LIDOCAINE [Concomitant]
     Active Substance: LIDOCAINE
     Indication: Abdominal pain
     Dosage: 1 MILLIGRAM PER KILOGRAM PER HOUR
     Route: 042

REACTIONS (1)
  - Off label use [Unknown]
